FAERS Safety Report 23326940 (Version 1)
Quarter: 2023Q4

REPORT INFORMATION
  Report Type: Report from Study
  Country: US (occurrence: US)
  Receive Date: 20231221
  Receipt Date: 20231221
  Transmission Date: 20240108
  Serious: Yes (Hospitalization)
  Sender: FDA-Public Use
  Company Number: US-OTSUKA-2023_028844

PATIENT
  Age: 67 Year
  Sex: Male
  Weight: 54.42 kg

DRUGS (3)
  1. TOLVAPTAN [Suspect]
     Active Substance: TOLVAPTAN
     Indication: Congenital cystic kidney disease
     Dosage: 15 MG, QD (IN THE MORNING)
     Route: 065
     Dates: start: 20220310
  2. TOLVAPTAN [Suspect]
     Active Substance: TOLVAPTAN
     Dosage: 15 MG, QD (8 H LATER)
     Route: 065
     Dates: start: 20220310
  3. HYDRALAZINE [Suspect]
     Active Substance: HYDRALAZINE HYDROCHLORIDE
     Indication: Product used for unknown indication
     Dosage: UNK
     Route: 065

REACTIONS (17)
  - Intracranial mass [Unknown]
  - Influenza [Unknown]
  - Cerebrovascular accident [Unknown]
  - Aphasia [Unknown]
  - Blood albumin decreased [Recovering/Resolving]
  - Blood calcium decreased [Recovering/Resolving]
  - Blood calcium decreased [Unknown]
  - Blood chloride increased [Not Recovered/Not Resolved]
  - Blood parathyroid hormone increased [Unknown]
  - Iron binding capacity total decreased [Unknown]
  - Transferrin saturation decreased [Unknown]
  - Blood 25-hydroxycholecalciferol decreased [Unknown]
  - Blood potassium decreased [Recovering/Resolving]
  - Blood urea increased [Recovering/Resolving]
  - Blood creatinine increased [Recovering/Resolving]
  - Glomerular filtration rate decreased [Recovering/Resolving]
  - Liver function test increased [Recovering/Resolving]

NARRATIVE: CASE EVENT DATE: 20231001
